FAERS Safety Report 8621267-X (Version None)
Quarter: 2012Q3

REPORT INFORMATION
  Report Type: 
  Country: None (occurrence: None)
  Receive Date: 20120824
  Receipt Date: 20120818
  Transmission Date: 20120928
  Serious: Yes (Hospitalization)
  Sender: FDA-Public Use
  Company Number: US-ABBOTT-12P-163-0970300-00

PATIENT
  Age: 68 Year
  Sex: Female

DRUGS (3)
  1. ROWASA [Concomitant]
     Indication: COLITIS ULCERATIVE
  2. HUMIRA [Suspect]
     Indication: COLITIS ULCERATIVE
     Dosage: 4 INJ, THEN 2 INJECTIONS
     Dates: start: 20120701
  3. ASACOL [Concomitant]
     Indication: COLITIS ULCERATIVE

REACTIONS (5)
  - DIARRHOEA [None]
  - URINARY TRACT INFECTION [None]
  - PYREXIA [None]
  - CHILLS [None]
  - VIRAL INFECTION [None]
